FAERS Safety Report 8180252-5 (Version None)
Quarter: 2012Q1

REPORT INFORMATION
  Report Type: 
  Country: None (occurrence: None)
  Receive Date: 20120302
  Receipt Date: 20110218
  Transmission Date: 20120608
  Serious: No
  Sender: FDA-Public Use
  Company Number: US-GLAXOSMITHKLINE-A0914434A

PATIENT
  Age: 57 Year
  Sex: Male

DRUGS (2)
  1. UNSPECIFIED MEDICATION [Concomitant]
  2. CLOBETASOL PROPIONATE [Suspect]
     Indication: SKIN IRRITATION
     Dosage: 1APP PER DAY
     Route: 061
     Dates: start: 20101201

REACTIONS (4)
  - PRODUCT COATING ISSUE [None]
  - DYSGEUSIA [None]
  - DRY MOUTH [None]
  - HYPOAESTHESIA [None]
